FAERS Safety Report 4828635-2 (Version None)
Quarter: 2005Q4

REPORT INFORMATION
  Report Type: 
  Country: None (occurrence: None)
  Receive Date: 20051014
  Receipt Date: 20050804
  Transmission Date: 20060501
  Serious: No
  Sender: FDA-Public Use
  Company Number: 2005SP000327

PATIENT
  Age: 58 Year
  Sex: Female
  Weight: 77.1115 kg

DRUGS (4)
  1. LUNESTA [Suspect]
     Dosage: 2 MG;HS;ORAL ; 1 MG;HS;ORAL
     Route: 048
     Dates: start: 20050401, end: 20050401
  2. LUNESTA [Suspect]
     Dosage: 2 MG;HS;ORAL ; 1 MG;HS;ORAL
     Route: 048
     Dates: start: 20050427
  3. OXYTROL [Concomitant]
  4. ALLEGRA [Concomitant]

REACTIONS (1)
  - SOMNOLENCE [None]
